FAERS Safety Report 14764834 (Version 6)
Quarter: 2019Q3

REPORT INFORMATION
  Report Type: Spontaneous
  Country: US (occurrence: US)
  Receive Date: 20180416
  Receipt Date: 20190906
  Transmission Date: 20191004
  Serious: Yes (Hospitalization, Other)
  Sender: FDA-Public Use
  Company Number: US-ALLERGAN-1820583US

PATIENT
  Sex: Female
  Weight: 110.2 kg

DRUGS (44)
  1. VIBERZI [Suspect]
     Active Substance: ELUXADOLINE
     Indication: IRRITABLE BOWEL SYNDROME
     Dosage: 75 MG, SINGLE
     Route: 065
     Dates: start: 20160413, end: 20160413
  2. VITAMIN D3 [Concomitant]
     Active Substance: CHOLECALCIFEROL
     Dosage: 5000 UNITS, QOD
     Route: 048
  3. LYRICA [Concomitant]
     Active Substance: PREGABALIN
     Dosage: 50 MG, Q6HR
     Route: 048
  4. POTASSIUM CHLORIDE. [Concomitant]
     Active Substance: POTASSIUM CHLORIDE
     Dosage: 10 MEQ, BID
     Route: 048
  5. FOSAMAX [Concomitant]
     Active Substance: ALENDRONATE SODIUM
     Dosage: 70 MG, Q WEEK AM
     Route: 048
  6. COLCRYS [Concomitant]
     Active Substance: COLCHICINE
     Indication: GOUT
     Dosage: 0.6 MG, QD
     Route: 048
  7. COLCRYS [Concomitant]
     Active Substance: COLCHICINE
     Dosage: 0.6 MG, BID
     Route: 048
  8. VITAMIN B12 [Concomitant]
     Active Substance: CYANOCOBALAMIN
     Dosage: 0.1ML OF 1000MCG/ML, Q2WEEKS
     Route: 030
  9. LIDODERM [Concomitant]
     Active Substance: LIDOCAINE
     Indication: FIBROMYALGIA
     Dosage: UNK UNK, QD
     Route: 003
  10. ALLOPURINOL. [Concomitant]
     Active Substance: ALLOPURINOL
     Dosage: 100 MG, QD
     Route: 048
  11. NORVASC [Concomitant]
     Active Substance: AMLODIPINE BESYLATE
     Dosage: 5 MG, QD
     Route: 048
  12. BIOTIN [Concomitant]
     Active Substance: BIOTIN
     Dosage: 800 ?G, QD IN TABLET
     Route: 048
  13. CYMBALTA [Concomitant]
     Active Substance: DULOXETINE HYDROCHLORIDE
     Dosage: 60 MG, QAM
     Route: 048
  14. VITAMIN D3 [Concomitant]
     Active Substance: CHOLECALCIFEROL
     Dosage: 2000 UNITS, QD
     Route: 048
  15. MAGNESIUM OXIDE. [Concomitant]
     Active Substance: MAGNESIUM OXIDE
     Dosage: 420 MG, QD
     Route: 048
  16. ZOFRAN [Concomitant]
     Active Substance: ONDANSETRON HYDROCHLORIDE
     Dosage: 4 MG, Q8HR FOR TWO DAYS
     Route: 048
  17. TRAMADOL. [Concomitant]
     Active Substance: TRAMADOL
     Dosage: 50 MG, Q6HR (AS NEEDED)
     Route: 048
  18. FERROUS SULFATE. [Concomitant]
     Active Substance: FERROUS SULFATE
     Dosage: 324 MG (65 MG IRON), BID
     Route: 048
  19. COENZYME Q10 [Concomitant]
     Active Substance: UBIDECARENONE
     Dosage: 200 MG, QD
     Route: 048
  20. COENZYME Q10 [Concomitant]
     Active Substance: UBIDECARENONE
     Dosage: 200 MG, BID
     Route: 048
  21. FOSAMAX [Concomitant]
     Active Substance: ALENDRONATE SODIUM
     Indication: OSTEOPOROSIS
     Dosage: 70 MG, QD
     Route: 048
  22. ROBAXIN [Concomitant]
     Active Substance: METHOCARBAMOL
     Dosage: 750 MG, BID
     Route: 048
  23. CALCIUM 600 PLUS VITAMIN D3 [Concomitant]
     Dosage: 1.500 MG-400 UNITS QD
     Route: 048
  24. ALLOPURINOL. [Concomitant]
     Active Substance: ALLOPURINOL
     Indication: GOUT
     Dosage: 100 MG, BID
     Route: 048
  25. ASPIRIN. [Concomitant]
     Active Substance: ASPIRIN
     Dosage: 81 MG, QD
     Route: 048
  26. FERROUS SULFATE. [Concomitant]
     Active Substance: FERROUS SULFATE
     Dosage: 325 MG, QD
     Route: 048
  27. MAGNESIUM OXIDE. [Concomitant]
     Active Substance: MAGNESIUM OXIDE
     Dosage: 400 MG, QD
     Route: 048
  28. VITAMIN E [Concomitant]
     Active Substance: .ALPHA.-TOCOPHEROL
     Dosage: 1000 UNITS, QD
  29. NYSTATIN. [Concomitant]
     Active Substance: NYSTATIN
     Dosage: 100.000/G - TWO TIMES A DAY AS NEEDED
     Route: 061
  30. TIZANIDINE. [Concomitant]
     Active Substance: TIZANIDINE
     Dosage: 4 MG, BID/PRN
     Route: 048
  31. ZOFRAN [Concomitant]
     Active Substance: ONDANSETRON HYDROCHLORIDE
     Dosage: 4 MG, Q6HR (AS NEEDED)
     Route: 048
  32. IRON [Concomitant]
     Active Substance: IRON
     Dosage: 1 DF, BID
     Route: 048
  33. BIOTIN [Concomitant]
     Active Substance: BIOTIN
     Dosage: 2500 ?G, QD IN CAPSULE
     Route: 048
  34. DEXILANT [Concomitant]
     Active Substance: DEXLANSOPRAZOLE
     Dosage: 60 MG, QD
     Route: 048
  35. HYDROCODONE/ACETAMINOPHEN [Concomitant]
     Active Substance: ACETAMINOPHEN\HYDROCODONE
     Indication: PAIN
     Dosage: 1 DF, PRN/QD/ 5 TIMES
     Route: 048
  36. HYOSCYAMINE. [Concomitant]
     Active Substance: HYOSCYAMINE
     Dosage: 0.125 MG, Q4HR/PRN
     Route: 060
  37. LASIX [Concomitant]
     Active Substance: FUROSEMIDE
     Dosage: 40 MG, QAM
     Route: 048
  38. VITAMIN E [Concomitant]
     Active Substance: .ALPHA.-TOCOPHEROL
     Dosage: 800 UNITS, QD
  39. ZOFRAN [Concomitant]
     Active Substance: ONDANSETRON HYDROCHLORIDE
     Dosage: 4 MG, QD/PRN
     Route: 048
  40. COLCHICINE. [Concomitant]
     Active Substance: COLCHICINE
     Dosage: 0.6 MG, QD
     Route: 048
  41. LYRICA [Concomitant]
     Active Substance: PREGABALIN
     Dosage: 75 MG, TID
     Route: 048
  42. MAGNESIUM OXIDE. [Concomitant]
     Active Substance: MAGNESIUM OXIDE
     Dosage: 250 MG, UNK
     Route: 048
  43. TRAZODONE [Concomitant]
     Active Substance: TRAZODONE HYDROCHLORIDE
     Dosage: 50 MG, QHS
     Route: 048
  44. OXYGEN. [Concomitant]
     Active Substance: OXYGEN
     Dosage: 2L/M AT NIGHT
     Route: 055

REACTIONS (39)
  - Hypertension [Unknown]
  - Depression [Unknown]
  - Systemic lupus erythematosus [Unknown]
  - Sleep apnoea syndrome [Unknown]
  - Hepatic function abnormal [Unknown]
  - Abdominal distension [Unknown]
  - Vomiting [Unknown]
  - Anxiety [Unknown]
  - Parkinson^s disease [Unknown]
  - Abdominal discomfort [Unknown]
  - Transaminases increased [Unknown]
  - Arthritis [Unknown]
  - Dyspepsia [Unknown]
  - Drug hypersensitivity [Unknown]
  - Nausea [Not Recovered/Not Resolved]
  - Pancreatitis relapsing [Recovering/Resolving]
  - Pancreatitis acute [Recovering/Resolving]
  - Hypomagnesaemia [Unknown]
  - Mood altered [Unknown]
  - Craniocerebral injury [Unknown]
  - Back disorder [Unknown]
  - Hiatus hernia [Unknown]
  - Migraine [Unknown]
  - Alopecia [Not Recovered/Not Resolved]
  - Respiratory failure [Unknown]
  - Pseudocyst [Unknown]
  - Hypokalaemia [Unknown]
  - Fear of disease [Not Recovered/Not Resolved]
  - Dyspnoea [Unknown]
  - Mental disorder [Unknown]
  - Product use complaint [Unknown]
  - Acute kidney injury [Unknown]
  - Iron deficiency anaemia [Unknown]
  - Fall [Unknown]
  - Gastrooesophageal reflux disease [Unknown]
  - Renal failure [Unknown]
  - Pain [Not Recovered/Not Resolved]
  - Amnesia [Unknown]
  - Abdominal pain upper [Not Recovered/Not Resolved]

NARRATIVE: CASE EVENT DATE: 201604
